FAERS Safety Report 20968941 (Version 1)
Quarter: 2022Q2

REPORT INFORMATION
  Report Type: Spontaneous
  Country: ES (occurrence: ES)
  Receive Date: 20220616
  Receipt Date: 20220616
  Transmission Date: 20220721
  Serious: Yes (Hospitalization)
  Sender: FDA-Public Use
  Company Number: None

PATIENT
  Age: 60 Year
  Sex: Female

DRUGS (3)
  1. SERTRALINE [Suspect]
     Active Substance: SERTRALINE HYDROCHLORIDE
     Indication: Depression
     Dosage: 50.0 MG, C/24 H
     Route: 065
     Dates: start: 20210219, end: 20210303
  2. QUETIAPINE [Suspect]
     Active Substance: QUETIAPINE
     Indication: Obsessive thoughts
     Dosage: 150.0 MG, (C/24 H).
     Route: 048
     Dates: start: 20210219, end: 20210303
  3. TRAZODONE HYDROCHLORIDE [Suspect]
     Active Substance: TRAZODONE HYDROCHLORIDE
     Indication: Depression
     Dosage: 100.0 MG, C/24 H NOC, 60 COMPRIMIDOS.
     Route: 048
     Dates: start: 20210219, end: 20210303

REACTIONS (1)
  - Movement disorder [Recovered/Resolved]

NARRATIVE: CASE EVENT DATE: 20210303
